FAERS Safety Report 9924276 (Version 4)
Quarter: 2014Q2

REPORT INFORMATION
  Report Type: Spontaneous
  Country: IT (occurrence: IT)
  Receive Date: 20140226
  Receipt Date: 20140415
  Transmission Date: 20141212
  Serious: Yes (Hospitalization)
  Sender: FDA-Public Use
  Company Number: IT-PFIZER INC-2014050508

PATIENT
  Age: 85 Year
  Sex: Female

DRUGS (3)
  1. CELEBREX [Suspect]
     Indication: COLON CANCER
     Dosage: UNK
     Dates: start: 20130609, end: 20130709
  2. ENDOXAN-BAXTER [Suspect]
     Indication: COLON CANCER
     Dosage: UNK
     Dates: start: 20130609, end: 20130709
  3. XELODA [Suspect]
     Indication: COLON CANCER
     Dosage: UNK
     Dates: start: 20130609, end: 20130709

REACTIONS (2)
  - Asthenia [Not Recovered/Not Resolved]
  - Anaemia [Not Recovered/Not Resolved]
